FAERS Safety Report 9820851 (Version 1)
Quarter: 2014Q1

REPORT INFORMATION
  Report Type: Spontaneous
  Country: DZ (occurrence: DZ)
  Receive Date: 20140116
  Receipt Date: 20140116
  Transmission Date: 20141002
  Serious: Yes (Hospitalization)
  Sender: FDA-Public Use
  Company Number: PHHY2014DZ003080

PATIENT
  Age: 54 Year
  Sex: Female

DRUGS (1)
  1. FEMARA [Suspect]
     Indication: OESTROGEN RECEPTOR POSITIVE BREAST CANCER
     Dosage: 2.5 MG, QD
     Route: 048
     Dates: start: 201306, end: 20140102

REACTIONS (5)
  - Respiratory distress [Unknown]
  - Dyspnoea [Unknown]
  - Haemoptysis [Unknown]
  - Cough [Unknown]
  - Insomnia [Unknown]
